FAERS Safety Report 20146021 (Version 1)
Quarter: 2021Q4

REPORT INFORMATION
  Report Type: Spontaneous
  Country: DE (occurrence: DE)
  Receive Date: 20211203
  Receipt Date: 20211203
  Transmission Date: 20220304
  Serious: Yes (Hospitalization, Other)
  Sender: FDA-Public Use
  Company Number: DE-TEVA-2021-DE-1985033

PATIENT
  Age: 36 Year
  Sex: Female
  Weight: 58 kg

DRUGS (4)
  1. PROGESTERONE [Suspect]
     Active Substance: PROGESTERONE
     Indication: Assisted reproductive technology
     Dosage: 800 MILLIGRAM DAILY; FROM CYCLE DAY 16,
     Route: 065
     Dates: start: 20211013
  2. CHORIOGONADOTROPIN ALFA [Suspect]
     Active Substance: CHORIOGONADOTROPIN ALFA
     Indication: Assisted reproductive technology
     Route: 065
  3. FOLLITROPIN ALFA [Suspect]
     Active Substance: FOLLITROPIN ALFA
     Indication: Assisted reproductive technology
     Dosage: 150 IU (INTERNATIONAL UNIT) DAILY; FROM CYCLE DAY 4-13
     Route: 065
     Dates: start: 20211001, end: 20211010
  4. ORGALUTRAN [Suspect]
     Active Substance: GANIRELIX ACETATE
     Indication: Assisted reproductive technology
     Dosage: .25 MILLIGRAM DAILY; FROM CYCLE DAY 9-14,
     Route: 065
     Dates: start: 20211006, end: 20211011

REACTIONS (1)
  - Ovarian hyperstimulation syndrome [Recovered/Resolved]

NARRATIVE: CASE EVENT DATE: 20211029
